FAERS Safety Report 4764347-1 (Version None)
Quarter: 2005Q3

REPORT INFORMATION
  Report Type: 
  Country: None (occurrence: None)
  Receive Date: 20050906
  Receipt Date: 20050818
  Transmission Date: 20060218
  Serious: Yes (Other)
  Sender: FDA-Public Use
  Company Number: USA040669701

PATIENT
  Sex: Female

DRUGS (2)
  1. KEFZOL [Suspect]
     Indication: PROPHYLAXIS
     Dates: start: 20030730
  2. KEFZOL [Suspect]
     Indication: SURGERY
     Dates: start: 20030730

REACTIONS (4)
  - DEAFNESS UNILATERAL [None]
  - FOOT OPERATION [None]
  - POST PROCEDURAL COMPLICATION [None]
  - TENDONITIS [None]
